FAERS Safety Report 10425088 (Version 3)
Quarter: 2016Q1

REPORT INFORMATION
  Report Type: Spontaneous
  Country: US (occurrence: US)
  Receive Date: 20140902
  Receipt Date: 20160106
  Transmission Date: 20160525
  Serious: Yes (Hospitalization, Other)
  Sender: FDA-Public Use
  Company Number: US-GLAXOSMITHKLINE-A1087310A

PATIENT
  Sex: Female

DRUGS (6)
  1. LAMICTAL [Suspect]
     Active Substance: LAMOTRIGINE
     Indication: SEIZURE
     Dosage: 50MG ONCE DAILY START IN 2012100 MG (UNKNOWN DOSING) STARTED ON 03 OCT 2012200 MG (UNKNOWN DOSI[...]
     Route: 048
     Dates: start: 2012
  2. EFFEXOR [Concomitant]
     Active Substance: VENLAFAXINE HYDROCHLORIDE
  3. NORCO [Concomitant]
     Active Substance: ACETAMINOPHEN\HYDROCODONE BITARTRATE
  4. LAMICTAL [Suspect]
     Active Substance: LAMOTRIGINE
     Dosage: 200 MG, U
     Dates: start: 2011
  5. LEVOTHYROXINE. [Concomitant]
     Active Substance: LEVOTHYROXINE
  6. CLONAZEPAM. [Concomitant]
     Active Substance: CLONAZEPAM

REACTIONS (10)
  - Drug ineffective [Recovered/Resolved]
  - Joint injury [Unknown]
  - Dementia [Not Recovered/Not Resolved]
  - Fall [Recovered/Resolved]
  - Memory impairment [Not Recovered/Not Resolved]
  - Wrist fracture [Unknown]
  - Multiple fractures [Unknown]
  - Balance disorder [Unknown]
  - Upper limb fracture [Unknown]
  - Seizure [Unknown]

NARRATIVE: CASE EVENT DATE: 2011
